FAERS Safety Report 6326312-2 (Version None)
Quarter: 2009Q3

REPORT INFORMATION
  Report Type: 
  Country: None (occurrence: None)
  Receive Date: 20090821
  Receipt Date: 20090805
  Transmission Date: 20100115
  Serious: Yes (Other)
  Sender: FDA-Public Use
  Company Number: 062750-2009-00009

PATIENT
  Sex: Female
  Weight: 56.6996 kg

DRUGS (4)
  1. ZICAM COLD REMEDY ORAL MIST [Suspect]
     Indication: NASOPHARYNGITIS
     Dosage: 2  X A DAY FOR  4 DAYS
     Dates: end: 20090725
  2. ZICAM SEASONAL ALLERGY RELIEF [Suspect]
  3. HYDROCHLOROTHIAZIDE [Concomitant]
  4. POTASSIUM SUPPLEMENT [Concomitant]

REACTIONS (1)
  - FACIAL PALSY [None]
